FAERS Safety Report 6573516-X (Version None)
Quarter: 2010Q1

REPORT INFORMATION
  Report Type: 
  Country: None (occurrence: None)
  Receive Date: 20100208
  Receipt Date: 20100129
  Transmission Date: 20100710
  Serious: Yes (Hospitalization)
  Sender: FDA-Public Use
  Company Number: US-ASTRAZENECA-2010SE01671

PATIENT
  Age: 82 Year
  Sex: Male

DRUGS (2)
  1. MEROPEN [Suspect]
     Indication: PNEUMONIA
     Route: 042
     Dates: start: 20091130, end: 20091206
  2. TAKEPRON [Concomitant]

REACTIONS (1)
  - PNEUMONIA [None]
